FAERS Safety Report 9612653 (Version 2)
Quarter: 2013Q4

REPORT INFORMATION
  Report Type: Spontaneous
  Country: US (occurrence: US)
  Receive Date: 20131010
  Receipt Date: 20131029
  Transmission Date: 20140711
  Serious: Yes (Other)
  Sender: FDA-Public Use
  Company Number: US-PFIZER INC-2013285675

PATIENT
  Age: 88 Year
  Sex: Male
  Weight: 74.83 kg

DRUGS (5)
  1. PHOSPHOLINE IODIDE [Suspect]
     Indication: INTRAOCULAR PRESSURE TEST ABNORMAL
     Dosage: ONE DROP TWO TIMES A DAY (IN RIGHT EYE ONLY)
     Route: 047
     Dates: start: 2009
  2. LATANOPROST [Concomitant]
     Indication: INTRAOCULAR PRESSURE TEST ABNORMAL
  3. TIMOLOL [Concomitant]
     Indication: INTRAOCULAR PRESSURE TEST ABNORMAL
  4. GLYBURIDE [Concomitant]
     Indication: TYPE 2 DIABETES MELLITUS
     Dosage: 2.5 MG, 1X/DAY
  5. LISINOPRIL [Concomitant]
     Indication: CARDIAC DISORDER
     Dosage: 20 MG, 1X/DAY

REACTIONS (4)
  - Eyelid ptosis [Recovered/Resolved]
  - Dry eye [Recovered/Resolved]
  - Wrong technique in drug usage process [Unknown]
  - Foreign body sensation in eyes [Unknown]
